FAERS Safety Report 6720663-5 (Version None)
Quarter: 2010Q2

REPORT INFORMATION
  Report Type: 
  Country: None (occurrence: None)
  Receive Date: 20100511
  Receipt Date: 20100503
  Transmission Date: 20101027
  Serious: Yes (Hospitalization, Other)
  Sender: FDA-Public Use
  Company Number: US-JNJFOC-20100400428

PATIENT
  Sex: Male
  Weight: 79.38 kg

DRUGS (11)
  1. REMICADE [Suspect]
     Indication: CROHN'S DISEASE
     Route: 042
  2. REMICADE [Suspect]
     Route: 042
  3. ALENDRONATE [Concomitant]
  4. LISINOPRIL [Concomitant]
     Indication: BLOOD PRESSURE
  5. AZATHIOPRINE [Concomitant]
     Indication: CROHN'S DISEASE
  6. METOPROLOL TARTRATE [Concomitant]
  7. AMLODIPINE [Concomitant]
     Indication: BLOOD PRESSURE
  8. METOCLOPRAMIDE HYDROCHLORIDE [Concomitant]
  9. LOPERAMIDE [Concomitant]
  10. VITAMIN B-12 [Concomitant]
  11. CALCIUM AND MAGNESIUM [Concomitant]

REACTIONS (10)
  - ABASIA [None]
  - ARTHRALGIA [None]
  - DYSPHAGIA [None]
  - DYSSTASIA [None]
  - FALL [None]
  - FLANK PAIN [None]
  - INFUSION RELATED REACTION [None]
  - INTESTINAL RESECTION [None]
  - MYALGIA [None]
  - TRISMUS [None]
